FAERS Safety Report 4921202-1 (Version None)
Quarter: 2006Q1

REPORT INFORMATION
  Report Type: 
  Country: None (occurrence: None)
  Receive Date: 20060125
  Receipt Date: 20050106
  Transmission Date: 20060701
  Serious: Yes (Hospitalization, Other)
  Sender: FDA-Public Use
  Company Number: HQWYE506511JAN05

PATIENT
  Age: 63 Year
  Sex: Male

DRUGS (1)
  1. CORDARONE [Suspect]
     Indication: VENTRICULAR TACHYCARDIA
     Dosage: UNSPECIFIED

REACTIONS (1)
  - PANCYTOPENIA [None]
